FAERS Safety Report 8345784-5 (Version None)
Quarter: 2012Q2

REPORT INFORMATION
  Report Type: 
  Country: None (occurrence: None)
  Receive Date: 20120508
  Receipt Date: 20120425
  Transmission Date: 20120825
  Serious: Yes (Hospitalization, Other)
  Sender: FDA-Public Use
  Company Number: US-MYLANLABS-2008AL009398

PATIENT
  Age: 81 Year
  Sex: Male
  Weight: 77.11 kg

DRUGS (22)
  1. XANAX [Concomitant]
  2. VITAMIN E [Concomitant]
  3. MECLIZINE [Concomitant]
  4. PRILOSEC [Concomitant]
  5. STOOL SOFTENER [Concomitant]
  6. ASPIRIN [Concomitant]
  7. UROVATRAL [Concomitant]
  8. COUMADIN [Concomitant]
  9. TENORMIN [Concomitant]
  10. ACIPHEX [Concomitant]
  11. ATENOLOL [Concomitant]
  12. NITROGLYCERIN [Concomitant]
  13. DARVOCET [Concomitant]
  14. ATIVAN [Concomitant]
  15. NITROGLYCERIN [Concomitant]
  16. PLAVIX [Concomitant]
  17. FAMOTIDINE [Concomitant]
  18. AMOXICILLIN [Concomitant]
  19. LORAZEPAM [Concomitant]
  20. DIGOXIN [Suspect]
     Indication: HEART RATE IRREGULAR
     Route: 048
     Dates: start: 20070107, end: 20080603
  21. SIMVASTATIN [Concomitant]
  22. MIRALAX /00754501/ [Concomitant]

REACTIONS (63)
  - OSTEOARTHRITIS [None]
  - TRIGEMINAL NEURALGIA [None]
  - INTERMITTENT CLAUDICATION [None]
  - CIRCULATING ANTICOAGULANT POSITIVE [None]
  - HYPERCHOLESTEROLAEMIA [None]
  - LABORATORY TEST ABNORMAL [None]
  - DIZZINESS [None]
  - NOCTURIA [None]
  - WALKING DISABILITY [None]
  - CONJUNCTIVITIS [None]
  - CUTIS LAXA [None]
  - MUCOSAL ATROPHY [None]
  - MUSCULOSKELETAL PAIN [None]
  - ARRHYTHMIA [None]
  - NAUSEA [None]
  - FATIGUE [None]
  - BASAL CELL CARCINOMA [None]
  - CATARACT OPERATION [None]
  - EYE PAIN [None]
  - HAEMORRHOIDS [None]
  - ARTHRALGIA [None]
  - DIVERTICULUM [None]
  - OEDEMA PERIPHERAL [None]
  - NERVE COMPRESSION [None]
  - VISUAL IMPAIRMENT [None]
  - PALPITATIONS [None]
  - DIPLOPIA [None]
  - EXTRASYSTOLES [None]
  - HYPERHIDROSIS [None]
  - MEIBOMIANITIS [None]
  - BLEPHARITIS [None]
  - AORTIC ANEURYSM [None]
  - ATRIAL FIBRILLATION [None]
  - PERIPHERAL VASCULAR DISORDER [None]
  - HYPOAESTHESIA [None]
  - ABDOMINAL PAIN UPPER [None]
  - FALL [None]
  - DYSPNOEA [None]
  - PHOTOPHOBIA [None]
  - NECK PAIN [None]
  - BACK PAIN [None]
  - CHEST PAIN [None]
  - ANGINA PECTORIS [None]
  - GASTRITIS [None]
  - HAEMATURIA [None]
  - VERTIGO [None]
  - CONSTIPATION [None]
  - BLOOD PRESSURE DECREASED [None]
  - CHEST DISCOMFORT [None]
  - ASTHENIA [None]
  - GAIT DISTURBANCE [None]
  - BENIGN PROSTATIC HYPERPLASIA [None]
  - HEADACHE [None]
  - ABDOMINAL PAIN [None]
  - COLONIC POLYP [None]
  - DYSPHAGIA [None]
  - ULNAR NEURITIS [None]
  - JOINT SWELLING [None]
  - VISION BLURRED [None]
  - CATARACT [None]
  - BLADDER OBSTRUCTION [None]
  - SUPRAVENTRICULAR EXTRASYSTOLES [None]
  - HYPERTROPHY [None]
